FAERS Safety Report 13185807 (Version 8)
Quarter: 2017Q3

REPORT INFORMATION
  Report Type: Spontaneous
  Country: US (occurrence: US)
  Receive Date: 20170203
  Receipt Date: 20170911
  Transmission Date: 20171127
  Serious: Yes (Hospitalization)
  Sender: FDA-Public Use
  Company Number: US-ACTELION-A-NJ2017-149447

PATIENT
  Age: 78 Year
  Sex: Female

DRUGS (19)
  1. FLOVENT [Concomitant]
     Active Substance: FLUTICASONE PROPIONATE
  2. VENTAVIS [Suspect]
     Active Substance: ILOPROST
     Dosage: 6 TREATMENT  4 XDAY
     Route: 055
     Dates: start: 20141112
  3. ADEMPAS [Suspect]
     Active Substance: RIOCIGUAT
     Dosage: 1.5 MG, TID
     Route: 048
  4. ADEMPAS [Suspect]
     Active Substance: RIOCIGUAT
     Dosage: 2 MG, TID
     Route: 048
  5. COUMADIN [Concomitant]
     Active Substance: WARFARIN SODIUM
  6. DIOVAN [Concomitant]
     Active Substance: VALSARTAN
  7. ADEMPAS [Suspect]
     Active Substance: RIOCIGUAT
     Indication: PRODUCT USED FOR UNKNOWN INDICATION
     Dosage: 1.5 MG, TID
     Route: 048
     Dates: start: 201312
  8. CIPROFLOXACIN. [Concomitant]
     Active Substance: CIPROFLOXACIN
  9. NEXIUM [Concomitant]
     Active Substance: ESOMEPRAZOLE MAGNESIUM
  10. AMLODIPINE [Concomitant]
     Active Substance: AMLODIPINE BESYLATE
  11. VENTAVIS [Suspect]
     Active Substance: ILOPROST
     Indication: PULMONARY ARTERIAL HYPERTENSION
     Dosage: 5 MCG, 6-9 X DAY
     Route: 055
     Dates: start: 20140411
  12. VENTAVIS [Suspect]
     Active Substance: ILOPROST
     Dosage: UNK, 6 TREATMENTS DAILY
     Route: 055
     Dates: start: 20140701
  13. COLCHICINE. [Concomitant]
     Active Substance: COLCHICINE
  14. CRESTOR [Concomitant]
     Active Substance: ROSUVASTATIN CALCIUM
  15. LASIX [Concomitant]
     Active Substance: FUROSEMIDE
  16. METOPROLOL. [Concomitant]
     Active Substance: METOPROLOL
  17. NORVASC [Concomitant]
     Active Substance: AMLODIPINE BESYLATE
  18. METRONIDAZOLE. [Concomitant]
     Active Substance: METRONIDAZOLE
  19. TRACLEER [Suspect]
     Active Substance: BOSENTAN
     Indication: PULMONARY ARTERIAL HYPERTENSION
     Route: 048

REACTIONS (17)
  - Swelling [Not Recovered/Not Resolved]
  - Palpitations [Recovering/Resolving]
  - Hypersensitivity [Recovered/Resolved]
  - Abdominal distension [Recovering/Resolving]
  - Productive cough [Unknown]
  - Dyspnoea [Recovered/Resolved]
  - Constipation [Recovered/Resolved]
  - Oedema peripheral [Not Recovered/Not Resolved]
  - Cardiac failure [Not Recovered/Not Resolved]
  - Diarrhoea [Recovered/Resolved]
  - Headache [Unknown]
  - Pain [Recovering/Resolving]
  - Hypertension [Recovering/Resolving]
  - Heart rate increased [Recovering/Resolving]
  - Ocular hyperaemia [Recovered/Resolved]
  - Gout [Recovering/Resolving]
  - Asthenia [Recovering/Resolving]

NARRATIVE: CASE EVENT DATE: 20170130
